FAERS Safety Report 7963303-X (Version None)
Quarter: 2011Q4

REPORT INFORMATION
  Report Type: 
  Country: None (occurrence: None)
  Receive Date: 20111208
  Receipt Date: 20111201
  Transmission Date: 20120403
  Serious: No
  Sender: FDA-Public Use
  Company Number: US-BIOGENIDEC-2011BI045935

PATIENT
  Age: 50 Year
  Sex: Female

DRUGS (3)
  1. BACLOFEN [Concomitant]
     Indication: MUSCLE SPASMS
  2. TYSABRI [Suspect]
     Indication: MULTIPLE SCLEROSIS
     Route: 042
     Dates: start: 20110823
  3. AMPYRA [Concomitant]
     Indication: GAIT DISTURBANCE
     Dates: start: 20110101

REACTIONS (1)
  - FATIGUE [None]
